FAERS Safety Report 6385131-1 (Version None)
Quarter: 2009Q4

REPORT INFORMATION
  Report Type: 
  Country: None (occurrence: None)
  Receive Date: 20091002
  Receipt Date: 20090928
  Transmission Date: 20100525
  Serious: Yes (Death, Life-Threatening)
  Sender: FDA-Public Use
  Company Number: DE-BAYER-200933844GPV

PATIENT
  Age: 73 Year
  Sex: Male
  Weight: 75 kg

DRUGS (4)
  1. ASPIRIN [Suspect]
     Indication: CORONARY ARTERY DISEASE
     Dosage: TOTAL DAILY DOSE: 100 MG  UNIT DOSE: 100 MG
     Route: 048
     Dates: start: 20030101
  2. CIPRAMIL [Concomitant]
     Indication: DEPRESSION
     Dosage: UNIT DOSE: 1 DF
     Route: 048
  3. LIORESAL [Concomitant]
     Dosage: UNIT DOSE: 1.5 DF
     Route: 048
  4. TIMOX [Concomitant]
     Indication: EPILEPSY
     Dosage: UNIT DOSE: 1 DF
     Route: 048

REACTIONS (3)
  - HAEMORRHAGIC DIATHESIS [None]
  - TONGUE OEDEMA [None]
  - UPPER AIRWAY OBSTRUCTION [None]
